FAERS Safety Report 5310452-0 (Version None)
Quarter: 2007Q1

REPORT INFORMATION
  Report Type: 
  Country: None (occurrence: None)
  Receive Date: 20070201
  Receipt Date: 20060207
  Transmission Date: 20070707
  Serious: Yes (Other)
  Sender: FDA-Public Use
  Company Number: US-2006-000725

PATIENT
  Age: 27 Year
  Sex: Female
  Weight: 59 kg

DRUGS (4)
  1. MIRENA [Suspect]
     Indication: CONTRACEPTION
     Dosage: 20 MG/DAY, CONT, INTRA-UTERINE
     Route: 015
     Dates: start: 20050518, end: 20060111
  2. ZOLOFT [Concomitant]
  3. XANAX [Concomitant]
  4. ALLEGRA-D /01367401 (FEXOFENADINE HYDROCHLORIDE) [Concomitant]

REACTIONS (3)
  - ABDOMINAL ADHESIONS [None]
  - PERITONEAL HAEMORRHAGE [None]
  - RUPTURED ECTOPIC PREGNANCY [None]
